FAERS Safety Report 7198970-4 (Version None)
Quarter: 2010Q4

REPORT INFORMATION
  Report Type: 
  Country: None (occurrence: None)
  Receive Date: 20101228
  Receipt Date: 20101217
  Transmission Date: 20110411
  Serious: Yes (Hospitalization)
  Sender: FDA-Public Use
  Company Number: US-BIOGENIDEC-2010BI040261

PATIENT
  Age: 44 Year
  Sex: Male

DRUGS (13)
  1. TYSABRI [Suspect]
     Indication: MULTIPLE SCLEROSIS
     Route: 042
     Dates: start: 20100812, end: 20100908
  2. IMDUR [Concomitant]
  3. MEGACE [Concomitant]
  4. FLAGYL [Concomitant]
  5. TREXONE [Concomitant]
  6. SIMVASTATIN [Concomitant]
  7. AMBIEN [Concomitant]
  8. ATENOLOL [Concomitant]
  9. BACLOFEN [Concomitant]
  10. LEXAPRO [Concomitant]
  11. CLONAZEPAM [Concomitant]
  12. PLAVIX [Concomitant]
  13. PEPCID [Concomitant]

REACTIONS (5)
  - CANDIDURIA [None]
  - DECREASED APPETITE [None]
  - DYSPHAGIA [None]
  - FUNGAL INFECTION [None]
  - HYPOTENSION [None]
